FAERS Safety Report 6603128-0 (Version None)
Quarter: 2010Q1

REPORT INFORMATION
  Report Type: 
  Country: None (occurrence: None)
  Receive Date: 20100218
  Receipt Date: 20100203
  Transmission Date: 20100710
  Serious: Yes (Disabling)
  Sender: FDA-Public Use
  Company Number: 2010SP007187

PATIENT
  Age: 34 Year
  Sex: Male

DRUGS (1)
  1. COPPERTONE GEL SPF 30 (AVOBENZONE/OCTISALATE/OCTOCRYLENE/OXYBENZONE) ( [Suspect]
     Indication: PROPHYLAXIS AGAINST SOLAR RADIATION
     Dosage: TOP
     Route: 061
     Dates: start: 20100101, end: 20100101

REACTIONS (5)
  - ERYTHEMA [None]
  - IMPAIRED WORK ABILITY [None]
  - PRURITUS [None]
  - RASH PAPULAR [None]
  - WOUND [None]
